FAERS Safety Report 25812221 (Version 1)
Quarter: 2025Q3

REPORT INFORMATION
  Report Type: Other
  Country: MD (occurrence: MD)
  Receive Date: 20250917
  Receipt Date: 20250917
  Transmission Date: 20251021
  Serious: Yes (Other)
  Sender: MACLEODS
  Company Number: MD-MACLEODS PHARMA-MAC2025055194

PATIENT

DRUGS (4)
  1. PYRAZINAMIDE [Suspect]
     Active Substance: PYRAZINAMIDE
     Indication: Pulmonary tuberculosis
     Dosage: TAKE 2 TABLETS 400 MG PER DAY, INFILTRATIVE PULMONARY TUBERCULOSIS S1+2 SNG,F EVOLVING.
     Route: 048
     Dates: start: 20241024, end: 20241028
  2. ISONIAZID [Concomitant]
     Active Substance: ISONIAZID
     Indication: Product used for unknown indication
     Route: 065
     Dates: start: 20241008, end: 20241028
  3. MOXIFLOXACIN HYDROCHLORIDE [Concomitant]
     Active Substance: MOXIFLOXACIN HYDROCHLORIDE
     Indication: Product used for unknown indication
     Route: 065
     Dates: start: 20241011, end: 20241028
  4. RIFAPENTINE [Concomitant]
     Active Substance: RIFAPENTINE
     Indication: Product used for unknown indication
     Dosage: 300 MILLIGRAM (MG)
     Route: 065
     Dates: start: 20241018, end: 20241028

REACTIONS (1)
  - Hyperbilirubinaemia [Recovered/Resolved]

NARRATIVE: CASE EVENT DATE: 20241028
